FAERS Safety Report 5444452-7 (Version None)
Quarter: 2007Q3

REPORT INFORMATION
  Report Type: 
  Country: None (occurrence: None)
  Receive Date: 20070824
  Receipt Date: 20070815
  Transmission Date: 20080115
  Serious: Yes (Other)
  Sender: FDA-Public Use
  Company Number: 2007328890

PATIENT
  Age: 60 Year
  Sex: Female

DRUGS (6)
  1. ROGAINE [Suspect]
     Indication: ALOPECIA
     Dosage: 2 TIMES A DAY (2 IN 1 D), TOPICAL
     Route: 061
     Dates: start: 20070721, end: 20070722
  2. BETASERON [Suspect]
     Indication: MULTIPLE SCLEROSIS
     Dosage: ^8 MIU, EVERY OTHER DAY^ (250 MCG), SUBCUTANEOUS
     Route: 058
     Dates: start: 19940112
  3. CYMBALTA [Concomitant]
  4. SKELAXIN [Concomitant]
  5. CLONOPIN [Concomitant]
  6. AMANTADINE HCL [Concomitant]

REACTIONS (4)
  - ASTHENIA [None]
  - GLOSSODYNIA [None]
  - LOCAL SWELLING [None]
  - PRURITUS [None]
